FAERS Safety Report 23698455 (Version 1)
Quarter: 2024Q2

REPORT INFORMATION
  Report Type: Report from Study
  Country: None (occurrence: None)
  Receive Date: 20240401
  Receipt Date: 20240401
  Transmission Date: 20240715
  Serious: Yes (Other)
  Sender: FDA-Public Use
  Company Number: None

PATIENT
  Age: 39 Year
  Sex: Female
  Weight: 71.8 kg

DRUGS (14)
  1. OBINUTUZUMAB [Suspect]
     Active Substance: OBINUTUZUMAB
     Indication: Lupus nephritis
     Dates: start: 20221115
  2. MYCOPHENOLATE MOFETIL [Suspect]
     Active Substance: MYCOPHENOLATE MOFETIL
     Indication: Lupus nephritis
     Dosage: OTHER FREQUENCY : 2 IN 1 D;?
     Route: 048
     Dates: start: 20221115
  3. ACETAMINOPHEN [Concomitant]
     Active Substance: ACETAMINOPHEN
  4. ATORVASTATIN [Concomitant]
     Active Substance: ATORVASTATIN
  5. ATOVAQUONE [Concomitant]
     Active Substance: ATOVAQUONE
  6. ENOXAPARIN SODIUM [Concomitant]
     Active Substance: ENOXAPARIN SODIUM
  7. FOLIC ACID [Concomitant]
     Active Substance: FOLIC ACID
  8. GABAPENTIN(GABAPENTIN)(Capsule [Concomitant]
  9. HYDROXYCHLOROQUINE(HYDROXYCHLOROQUINE)(Tablet) [Concomitant]
  10. MELATONIN(MELATONIN)(Tablet [Concomitant]
  11. PANTOPRAZOLE(PANTOPRAZOLE)(Tablet [Concomitant]
  12. SACUBITRIL;VALSARTAN(VALSARTAN, SACUBITRIL)(Tablet [Concomitant]
  13. METOPROLOL SUCCINATE ER(METOPROLOL SUCCINATE)(Tablet [Concomitant]
  14. PREDNISONE(PREDNISONE)(Tablet [Concomitant]

REACTIONS (3)
  - Gastroenteritis [None]
  - Influenza [None]
  - Pneumonia [None]

NARRATIVE: CASE EVENT DATE: 20240305
